FAERS Safety Report 16473428 (Version 5)
Quarter: 2020Q3

REPORT INFORMATION
  Report Type: Spontaneous
  Country: CA (occurrence: CA)
  Receive Date: 20190625
  Receipt Date: 20200817
  Transmission Date: 20201102
  Serious: Yes (Other)
  Sender: FDA-Public Use
  Company Number: CA-PFIZER INC-2018185756

PATIENT
  Age: 59 Year
  Sex: Female

DRUGS (4)
  1. PREDNISONE. [Concomitant]
     Active Substance: PREDNISONE
     Indication: RHEUMATOID ARTHRITIS
     Dosage: UNK
     Route: 065
  2. XELJANZ [Suspect]
     Active Substance: TOFACITINIB CITRATE
     Dosage: 5 MG, 2X/DAY
     Route: 048
     Dates: start: 2019
  3. ARAVA [Concomitant]
     Active Substance: LEFLUNOMIDE
     Indication: RHEUMATOID ARTHRITIS
     Dosage: 20 MG, UNK
     Route: 065
  4. XELJANZ [Suspect]
     Active Substance: TOFACITINIB CITRATE
     Indication: RHEUMATOID ARTHRITIS
     Dosage: 5 MG, 2X/DAY
     Route: 048
     Dates: start: 20180410, end: 201906

REACTIONS (9)
  - Tooth disorder [Unknown]
  - Thyroid disorder [Unknown]
  - Blood pressure abnormal [Unknown]
  - Abdominal discomfort [Unknown]
  - Oral pain [Unknown]
  - Fatigue [Unknown]
  - Therapeutic product effect incomplete [Unknown]
  - Tooth infection [Unknown]
  - Malaise [Unknown]

NARRATIVE: CASE EVENT DATE: 2018
